FAERS Safety Report 10228892 (Version 1)
Quarter: 2014Q2

REPORT INFORMATION
  Report Type: Spontaneous
  Country: US (occurrence: US)
  Receive Date: 20140610
  Receipt Date: 20140610
  Transmission Date: 20141212
  Serious: No
  Sender: FDA-Public Use
  Company Number: US-GILEAD-2014-0104885

PATIENT
  Age: 56 Year
  Sex: Male

DRUGS (1)
  1. SOVALDI [Suspect]
     Indication: HEPATITIS C
     Dosage: 400 MG, UNK
     Route: 065
     Dates: start: 20140606

REACTIONS (5)
  - Productive cough [Unknown]
  - Dyspnoea [Unknown]
  - Headache [Unknown]
  - Back pain [Unknown]
  - Muscle spasms [Unknown]
